FAERS Safety Report 5137105-6 (Version None)
Quarter: 2006Q4

REPORT INFORMATION
  Report Type: 
  Country: None (occurrence: None)
  Receive Date: 20061030
  Receipt Date: 20060919
  Transmission Date: 20070319
  Serious: No
  Sender: FDA-Public Use
  Company Number: US-AMGEN-US193987

PATIENT

DRUGS (1)
  1. KEPIVANCE [Suspect]
     Indication: MUCOSAL INFLAMMATION

REACTIONS (1)
  - BLISTER [None]
